FAERS Safety Report 7685737-3 (Version None)
Quarter: 2011Q3

REPORT INFORMATION
  Report Type: 
  Country: None (occurrence: None)
  Receive Date: 20110815
  Receipt Date: 20110815
  Transmission Date: 20111222
  Serious: Yes (Other)
  Sender: FDA-Public Use
  Company Number: None

PATIENT
  Sex: Male
  Weight: 61.6 kg

DRUGS (1)
  1. MULTIHANCE [Suspect]
     Route: 042
     Dates: start: 20110728, end: 20110728

REACTIONS (1)
  - URTICARIA [None]
